FAERS Safety Report 4662730-6 (Version None)
Quarter: 2005Q2

REPORT INFORMATION
  Report Type: 
  Country: None (occurrence: None)
  Receive Date: 20050516
  Receipt Date: 20050504
  Transmission Date: 20051028
  Serious: Yes (Other)
  Sender: FDA-Public Use
  Company Number: US-GLAXOSMITHKLINE-B0380118A

PATIENT
  Age: 28 Year
  Sex: Female

DRUGS (3)
  1. EPOPROSTENOL [Suspect]
     Indication: PULMONARY HYPERTENSION
     Dosage: 65NGKM PER DAY
     Route: 065
  2. PREDNISONE [Concomitant]
  3. AZATHIOPRINE [Concomitant]

REACTIONS (2)
  - ERYTHEMA [None]
  - VASCULITIC RASH [None]
